FAERS Safety Report 25502270 (Version 1)
Quarter: 2025Q3

REPORT INFORMATION
  Report Type: Spontaneous
  Country: US (occurrence: US)
  Receive Date: 20250702
  Receipt Date: 20250702
  Transmission Date: 20251021
  Serious: No
  Sender: LEO PHARM
  Company Number: US-LEO Pharma-381036

PATIENT
  Age: 37 Year
  Sex: Male

DRUGS (1)
  1. ADBRY [Suspect]
     Active Substance: TRALOKINUMAB-LDRM
     Indication: Dermatitis atopic
     Dosage: .
     Dates: start: 202503, end: 20250606

REACTIONS (3)
  - Dry eye [Recovering/Resolving]
  - Conjunctivitis [Recovering/Resolving]
  - Eye pruritus [Recovering/Resolving]
